FAERS Safety Report 26192169 (Version 1)
Quarter: 2025Q4

REPORT INFORMATION
  Report Type: Spontaneous
  Country: US (occurrence: None)
  Receive Date: 20251223
  Receipt Date: 20251223
  Transmission Date: 20260117
  Serious: No
  Sender: FDA-CTU
  Company Number: None

PATIENT
  Age: 23 Month
  Sex: Male

DRUGS (1)
  1. COSMETICS [Suspect]
     Active Substance: COSMETICS
     Indication: Personal hygiene
     Dosage: OTHER QUANTITY : 1 WIPE;
     Dates: start: 20251220, end: 20251223

REACTIONS (1)
  - Product contamination with body fluid [None]

NARRATIVE: CASE EVENT DATE: 20251223
